FAERS Safety Report 4489191-4 (Version None)
Quarter: 2004Q4

REPORT INFORMATION
  Report Type: 
  Country: None (occurrence: None)
  Receive Date: 20041029
  Receipt Date: 20041019
  Transmission Date: 20050328
  Serious: Yes (Death, Other)
  Sender: FDA-Public Use
  Company Number: GB-JNJFOC-20040506166

PATIENT
  Sex: Male
  Weight: 37.8 kg

DRUGS (2)
  1. DURAGESIC [Suspect]
     Indication: NEUROBLASTOMA
     Route: 062
  2. MORPHINE SULFATE [Concomitant]

REACTIONS (3)
  - ABNORMAL DREAMS [None]
  - FEELING ABNORMAL [None]
  - HALLUCINATION [None]
